FAERS Safety Report 6554856-7 (Version None)
Quarter: 2010Q1

REPORT INFORMATION
  Report Type: 
  Country: None (occurrence: None)
  Receive Date: 20100125
  Receipt Date: 20100109
  Transmission Date: 20100710
  Serious: Yes (Hospitalization)
  Sender: FDA-Public Use
  Company Number: MPS1-1000295

PATIENT
  Age: 8 Year
  Sex: Female
  Weight: 25 kg

DRUGS (2)
  1. ALDURAZYME [Suspect]
     Indication: MUCOPOLYSACCHARIDOSIS
     Dosage: 0.7 MG/KG, 1X/W
  2. BENADRYL [Concomitant]

REACTIONS (3)
  - RESPIRATORY DISTRESS [None]
  - SPINAL DECOMPRESSION [None]
  - URINARY TRACT INFECTION [None]
